FAERS Safety Report 19437984 (Version 3)
Quarter: 2021Q4

REPORT INFORMATION
  Report Type: Report from Study
  Country: US (occurrence: US)
  Receive Date: 20210618
  Receipt Date: 20211208
  Transmission Date: 20220304
  Serious: No
  Sender: FDA-Public Use
  Company Number: NVSC2019US017282

PATIENT
  Sex: Female

DRUGS (1)
  1. AFINITOR [Suspect]
     Active Substance: EVEROLIMUS
     Indication: Tuberous sclerosis complex
     Dosage: 10 MG, QD
     Route: 048
     Dates: start: 20141011

REACTIONS (2)
  - Kidney enlargement [Unknown]
  - Heavy menstrual bleeding [Unknown]
